FAERS Safety Report 10064462 (Version 1)
Quarter: 2014Q2

REPORT INFORMATION
  Report Type: Spontaneous
  Country: US (occurrence: None)
  Receive Date: 20140407
  Receipt Date: 20140407
  Transmission Date: 20141212
  Serious: Yes (Other)
  Sender: FDA-Public Use
  Company Number: None

PATIENT
  Age: 47 Year
  Sex: Female
  Weight: 72.58 kg

DRUGS (1)
  1. MIRVASO [Suspect]
     Indication: ROSACEA
     Dosage: SMALL AMOUNT APPLIED TO A SURFACE, USUALLY THE SKIN
     Dates: start: 20140329, end: 20140402

REACTIONS (5)
  - Flushing [None]
  - Facial pain [None]
  - Feeling hot [None]
  - Erythema [None]
  - Condition aggravated [None]
